FAERS Safety Report 15535548 (Version 1)
Quarter: 2018Q4

REPORT INFORMATION
  Report Type: Spontaneous
  Country: US (occurrence: US)
  Receive Date: 20181022
  Receipt Date: 20181022
  Transmission Date: 20190205
  Serious: No
  Sender: FDA-Public Use
  Company Number: US-JNJFOC-20181013689

PATIENT
  Age: 63 Year
  Sex: Female
  Weight: 47.17 kg

DRUGS (2)
  1. PEPCID AC MAXIMUM STRENGTH [Suspect]
     Active Substance: FAMOTIDINE
     Indication: GASTROOESOPHAGEAL REFLUX DISEASE
     Dosage: ONE DAY.
     Route: 048
     Dates: start: 20180917
  2. PEPCID AC MAXIMUM STRENGTH [Suspect]
     Active Substance: FAMOTIDINE
     Route: 048

REACTIONS (7)
  - Tremor [Unknown]
  - Dry mouth [Unknown]
  - Fatigue [Unknown]
  - Abdominal pain upper [Recovered/Resolved]
  - Irritability [Unknown]
  - Product administration error [Unknown]
  - Constipation [Unknown]

NARRATIVE: CASE EVENT DATE: 20180917
